FAERS Safety Report 5034217-2 (Version None)
Quarter: 2006Q2

REPORT INFORMATION
  Report Type: 
  Country: None (occurrence: None)
  Receive Date: 20060626
  Receipt Date: 20060616
  Transmission Date: 20061013
  Serious: Yes (Other)
  Sender: FDA-Public Use
  Company Number: FR-GLAXOSMITHKLINE-B0428463A

PATIENT
  Age: 53 Year
  Sex: Male

DRUGS (6)
  1. ZOPHREN [Suspect]
     Route: 065
     Dates: start: 20060601, end: 20060601
  2. GEMZAR [Suspect]
     Indication: NON-SMALL CELL LUNG CANCER
     Route: 042
     Dates: start: 20060601, end: 20060601
  3. CISPLATIN [Concomitant]
     Indication: NON-SMALL CELL LUNG CANCER
     Route: 042
     Dates: start: 20060601, end: 20060601
  4. MOTILIUM [Concomitant]
     Indication: VOMITING
     Dosage: 6TAB PER DAY
     Route: 048
     Dates: start: 20060601, end: 20060601
  5. POLARAMINE [Concomitant]
     Route: 065
     Dates: start: 20060601, end: 20060601
  6. DICYNONE [Concomitant]
     Route: 065

REACTIONS (6)
  - BURNING SENSATION [None]
  - PRURITUS [None]
  - PYREXIA [None]
  - RASH [None]
  - SKIN LESION [None]
  - TOXIC SKIN ERUPTION [None]
